FAERS Safety Report 4834578-0 (Version None)
Quarter: 2005Q4

REPORT INFORMATION
  Report Type: 
  Country: None (occurrence: None)
  Receive Date: 20051122
  Receipt Date: 20050413
  Transmission Date: 20060501
  Serious: No
  Sender: FDA-Public Use
  Company Number: US-BRISTOL-MYERS SQUIBB COMPANY-12931796

PATIENT

DRUGS (4)
  1. PRAVACHOL [Suspect]
     Indication: BLOOD CHOLESTEROL INCREASED
     Dosage: INITIAL DOSE 20MG, INCREASED TO 40MG ON 03-MAR-2005
  2. TRAZODONE HCL [Concomitant]
  3. PAXIL [Concomitant]
  4. PRINZIDE [Concomitant]

REACTIONS (1)
  - ONYCHOLYSIS [None]
